FAERS Safety Report 15104988 (Version 1)
Quarter: 2018Q3

REPORT INFORMATION
  Report Type: Spontaneous
  Country: US (occurrence: US)
  Receive Date: 20180703
  Receipt Date: 20180703
  Transmission Date: 20181010
  Serious: No
  Sender: FDA-Public Use
  Company Number: US-009507513-1806USA003803

PATIENT
  Age: 21 Year
  Sex: Female
  Weight: 110.66 kg

DRUGS (1)
  1. NEXPLANON [Suspect]
     Active Substance: ETONOGESTREL
     Dosage: 1 DF, UNK
     Route: 059
     Dates: start: 20170323, end: 20180606

REACTIONS (8)
  - Paraesthesia [Unknown]
  - Back pain [Unknown]
  - Incorrect drug administration duration [Unknown]
  - Asthenia [Recovered/Resolved]
  - Hypoaesthesia [Unknown]
  - Device deployment issue [Recovered/Resolved]
  - Neuralgia [Unknown]
  - Musculoskeletal disorder [Unknown]

NARRATIVE: CASE EVENT DATE: 20180606
